FAERS Safety Report 8943793 (Version 2)
Quarter: 2013Q1

REPORT INFORMATION
  Report Type: Spontaneous
  Country: IT (occurrence: IT)
  Receive Date: 20121203
  Receipt Date: 20130115
  Transmission Date: 20140127
  Serious: Yes (Life-Threatening)
  Sender: FDA-Public Use
  Company Number: IT-GLAXOSMITHKLINE-B0849045A

PATIENT
  Age: 81 Year
  Sex: Female

DRUGS (6)
  1. ELONTRIL [Suspect]
     Indication: MAJOR DEPRESSION
     Dosage: 300MG PER DAY
     Route: 048
     Dates: start: 20090101, end: 20121107
  2. EFEXOR [Suspect]
     Indication: MAJOR DEPRESSION
     Dosage: 75MG PER DAY
     Route: 048
     Dates: start: 20090101, end: 20121107
  3. LAROXYL [Suspect]
     Indication: MAJOR DEPRESSION
     Dosage: 25MG PER DAY
     Route: 048
     Dates: start: 20090101, end: 20121107
  4. CLONAZEPAM [Concomitant]
     Dates: start: 20090101, end: 20121107
  5. ROSUVASTATIN [Concomitant]
     Dosage: 10MG PER DAY
     Dates: start: 20090101, end: 20121107
  6. ALPHA TOCOPHEROL [Concomitant]
     Dosage: 1TAB MONTHLY

REACTIONS (1)
  - Torsade de pointes [Recovered/Resolved]
